FAERS Safety Report 6405801-6 (Version None)
Quarter: 2009Q4

REPORT INFORMATION
  Report Type: 
  Country: None (occurrence: None)
  Receive Date: 20091014
  Receipt Date: 20090930
  Transmission Date: 20100525
  Serious: Yes (Death, Hospitalization)
  Sender: FDA-Public Use
  Company Number: 2009AC000060

PATIENT
  Age: 84 Year
  Sex: Male

DRUGS (11)
  1. DIGOXIN [Suspect]
     Dosage: 0.125 MG;QD;PO
     Route: 048
     Dates: start: 20070401, end: 20080401
  2. COREG [Concomitant]
  3. DIOVAN [Concomitant]
  4. FERATAB [Concomitant]
  5. SOLU-MEDROL [Concomitant]
  6. NOVOLIN /00030501/ [Concomitant]
  7. DUONEB [Concomitant]
  8. NORVASC [Concomitant]
  9. RYTHMOL [Concomitant]
  10. LISINOPRIL [Concomitant]
  11. LEVAQUIN [Concomitant]

REACTIONS (19)
  - ANAEMIA [None]
  - ATRIAL FIBRILLATION [None]
  - BENIGN PROSTATIC HYPERPLASIA [None]
  - BLOOD UREA INCREASED [None]
  - CHRONIC OBSTRUCTIVE PULMONARY DISEASE [None]
  - CONTUSION [None]
  - DIVERTICULUM [None]
  - ECONOMIC PROBLEM [None]
  - HYPERTENSION [None]
  - HYPOTENSION [None]
  - INJURY [None]
  - LEUKOCYTOCLASTIC VASCULITIS [None]
  - LUNG INFECTION PSEUDOMONAL [None]
  - RASH ERYTHEMATOUS [None]
  - RENAL FAILURE ACUTE [None]
  - RENAL FAILURE CHRONIC [None]
  - RESPIRATORY FAILURE [None]
  - SEPSIS [None]
  - THROMBOCYTOPENIA [None]
